FAERS Safety Report 9615408 (Version 1)
Quarter: 2013Q4

REPORT INFORMATION
  Report Type: Spontaneous
  Country: US (occurrence: None)
  Receive Date: 20131010
  Receipt Date: 20131010
  Transmission Date: 20140711
  Serious: Yes (Other)
  Sender: FDA-Public Use
  Company Number: None

PATIENT
  Age: 66 Year
  Sex: Female

DRUGS (1)
  1. EXJADE 500 MG NOVARTIS [Suspect]
     Indication: BLOOD IRON INCREASED
     Route: 048
     Dates: start: 20130924, end: 20131009

REACTIONS (2)
  - Pancreatic disorder [None]
  - Gallbladder disorder [None]
